FAERS Safety Report 5670869-1 (Version None)
Quarter: 2008Q1

REPORT INFORMATION
  Report Type: 
  Country: None (occurrence: None)
  Receive Date: 20080318
  Receipt Date: 20080303
  Transmission Date: 20080703
  Serious: Yes (Hospitalization)
  Sender: FDA-Public Use
  Company Number: GB-MERCK-0803GBR00052

PATIENT
  Age: 64 Year
  Sex: Female

DRUGS (1)
  1. MODURETIC 5-50 [Suspect]
     Route: 048
     Dates: start: 20070101, end: 20070101

REACTIONS (9)
  - ABDOMINAL DISTENSION [None]
  - ASTHENIA [None]
  - BLOOD SODIUM DECREASED [None]
  - CHEST PAIN [None]
  - DEHYDRATION [None]
  - DYSPNOEA [None]
  - INSOMNIA [None]
  - MUSCLE SPASMS [None]
  - VISION BLURRED [None]
